FAERS Safety Report 22048501 (Version 2)
Quarter: 2023Q1

REPORT INFORMATION
  Report Type: Report from Study
  Country: CA (occurrence: CA)
  Receive Date: 20230301
  Receipt Date: 20230313
  Transmission Date: 20230418
  Serious: Yes (Other)
  Sender: FDA-Public Use
  Company Number: CA-GLAXOSMITHKLINE-CA2023029861

PATIENT

DRUGS (1)
  1. MEPOLIZUMAB [Suspect]
     Active Substance: MEPOLIZUMAB
     Indication: Eosinophilic granulomatosis with polyangiitis
     Dosage: 300 MG, Z SC EVERY 4 WEEK
     Route: 058
     Dates: start: 20190806

REACTIONS (2)
  - Oesophageal rupture [Not Recovered/Not Resolved]
  - Swollen tongue [Not Recovered/Not Resolved]
